FAERS Safety Report 4471356-9 (Version None)
Quarter: 2004Q4

REPORT INFORMATION
  Report Type: 
  Country: None (occurrence: None)
  Receive Date: 20041006
  Receipt Date: 20040923
  Transmission Date: 20050328
  Serious: Yes (Other)
  Sender: FDA-Public Use
  Company Number: 205489

PATIENT
  Age: 58 Year
  Sex: Female

DRUGS (24)
  1. HERCEPTIN [Suspect]
     Indication: BREAST CANCER
     Dosage: 4 MG/KG, SINGLE, INTRAVENOUS; 2 MG/KG, 1/WEEK, INTRAVENOUS
     Route: 042
     Dates: start: 20031211, end: 20031211
  2. HERCEPTIN [Suspect]
     Indication: BREAST CANCER
     Dosage: 4 MG/KG, SINGLE, INTRAVENOUS; 2 MG/KG, 1/WEEK, INTRAVENOUS
     Route: 042
     Dates: end: 20040305
  3. TAXOTERE [Suspect]
     Indication: BREAST CANCER
     Dosage: 132 MG, Q3W, INTRAVENOUS
     Route: 042
     Dates: start: 20031212
  4. CARBOPLATIN [Suspect]
     Indication: BREAST CANCER
     Dosage: 672 MG, Q3W, INTRAVENOUS
     Route: 042
     Dates: start: 20031212
  5. LIPITOR [Concomitant]
  6. MULTI-VITAMINS [Concomitant]
  7. GLUCOSAMINE (GLUCOSAMINE) [Concomitant]
  8. COMPAZINE [Concomitant]
  9. ATIVAN [Concomitant]
  10. AMBIEN [Concomitant]
  11. SONATA [Concomitant]
  12. ELAVIL [Concomitant]
  13. LEVAQUIN [Concomitant]
  14. MORPHINE [Concomitant]
  15. ZANTAC [Concomitant]
  16. TYLENOL #1 (UNITED STATES) (CODEINE PHOSPHATE, ACETAMINOPHEN) [Concomitant]
  17. BENADRYL [Concomitant]
  18. DECADRON [Concomitant]
  19. ANZEMET [Concomitant]
  20. KYTRIL [Concomitant]
  21. SCOPOLAMINE (SCOPOLAMINE NOS) [Concomitant]
  22. SODIUM CHLORIDE [Concomitant]
  23. EMEND [Concomitant]
  24. NEXIUM [Concomitant]

REACTIONS (15)
  - ALANINE AMINOTRANSFERASE INCREASED [None]
  - ASPARTATE AMINOTRANSFERASE INCREASED [None]
  - ATELECTASIS [None]
  - BONE SCAN ABNORMAL [None]
  - DYSPNOEA [None]
  - EJECTION FRACTION DECREASED [None]
  - FALL [None]
  - FULL BLOOD COUNT ABNORMAL [None]
  - INJURY [None]
  - INTERVERTEBRAL DISC DEGENERATION [None]
  - METASTASES TO BONE [None]
  - MYOCARDIAL ISCHAEMIA [None]
  - OSTEOARTHRITIS [None]
  - PULMONARY EMBOLISM [None]
  - RENAL CYST [None]
